FAERS Safety Report 6613409-2 (Version None)
Quarter: 2010Q1

REPORT INFORMATION
  Report Type: 
  Country: None (occurrence: None)
  Receive Date: 20100304
  Receipt Date: 20100224
  Transmission Date: 20100710
  Serious: Yes (Hospitalization, Other)
  Sender: FDA-Public Use
  Company Number: US-JNJFOC-20091206984

PATIENT
  Age: 27 Year
  Sex: Female

DRUGS (11)
  1. REMICADE [Suspect]
     Indication: COLITIS ULCERATIVE
     Route: 042
  2. REMICADE [Suspect]
     Dosage: EVERY 4 TO 6 WEEKS
     Route: 042
  3. REMICADE [Suspect]
     Dosage: EVERY 4 TO 6 WEEKS
     Route: 042
  4. REMICADE [Suspect]
     Dosage: EVERY 4 TO 6 WEEKS
     Route: 042
  5. WELLBUTRIN [Concomitant]
     Indication: ANXIETY
  6. WELLBUTRIN [Concomitant]
     Indication: DEPRESSION
  7. KLONOPIN [Concomitant]
     Route: 048
  8. ANTIBIOTICS [Concomitant]
     Indication: ACNE
  9. ASACOL [Concomitant]
     Indication: COLITIS ULCERATIVE
  10. CYMBALTA [Concomitant]
     Indication: ANXIETY
  11. CYMBALTA [Concomitant]
     Indication: DEPRESSION

REACTIONS (6)
  - CONFUSIONAL STATE [None]
  - DECREASED APPETITE [None]
  - DISTURBANCE IN ATTENTION [None]
  - DRUG INEFFECTIVE [None]
  - LETHARGY [None]
  - NAUSEA [None]
